FAERS Safety Report 9494095 (Version 2)
Quarter: 2013Q3

REPORT INFORMATION
  Report Type: Spontaneous
  Country: IT (occurrence: None)
  Receive Date: 20130827
  Receipt Date: 20130905
  Transmission Date: 20140515
  Serious: Yes (Hospitalization)
  Sender: FDA-Public Use
  Company Number: 2013AP007408

PATIENT
  Age: 86 Year
  Sex: Female

DRUGS (12)
  1. LOSARTAN POTASSIUM W/HYDROCHLOROTHIAZIDE [Suspect]
     Route: 048
     Dates: start: 20121201, end: 20130808
  2. FUROSEMIDE (FUROSEMIDE) [Suspect]
     Route: 048
     Dates: start: 20110901, end: 20130808
  3. TRIATEC [Suspect]
     Indication: HYPERTENSION
     Route: 048
     Dates: start: 20130501, end: 20130807
  4. EUTIROX (LEVOTHYROXINE SODIUM) [Concomitant]
  5. CARDURA (DOXAZOSIN MESILATE) [Concomitant]
  6. ESOMEPRAZOLE SODIUM (ESOMEPRAZOLE SODIUM) [Concomitant]
  7. AMILODIPINE (AMLODIPINE) [Concomitant]
  8. DIGOXIN (DIGOXIN) [Concomitant]
  9. SPIRONOLACTONE (SPIRONOLACTONE) [Concomitant]
  10. NOVALGINA (METAMIZOLE SODIUM) [Concomitant]
  11. BUSCOPAN (HYOSCINE BUTYLBROMIDE) [Concomitant]
  12. BENZYLPENICILLIN (BENZYLPENICILLIN) [Concomitant]

REACTIONS (3)
  - Hyponatraemia [None]
  - Hypotension [None]
  - Presyncope [None]
